FAERS Safety Report 8120553-X (Version None)
Quarter: 2012Q1

REPORT INFORMATION
  Report Type: 
  Country: None (occurrence: None)
  Receive Date: 20120207
  Receipt Date: 20120127
  Transmission Date: 20120608
  Serious: Yes (Life-Threatening, Hospitalization, Other)
  Sender: FDA-Public Use
  Company Number: FR-PFIZER INC-2010179859

PATIENT
  Age: 60 Year
  Sex: Male

DRUGS (10)
  1. ASPIRIN [Concomitant]
  2. ALDACTONE [Suspect]
     Dosage: 50 MG, 1X/DAY
     Route: 048
     Dates: start: 20100930, end: 20101113
  3. BISOPROLOL FUMARATE [Concomitant]
  4. AMLODIPINE BESYLATE [Concomitant]
  5. LASIX [Concomitant]
  6. ALDACTONE [Suspect]
     Indication: CARDIAC FAILURE
     Dosage: 25 MG, 1X/DAY
  7. ATORVASTATIN [Concomitant]
  8. RAMIPRIL [Suspect]
     Dosage: 10 MG, 1X/DAY
     Route: 048
  9. NITROGLYCERIN [Concomitant]
  10. LANTUS [Concomitant]

REACTIONS (3)
  - RENAL FAILURE ACUTE [None]
  - LOSS OF CONSCIOUSNESS [None]
  - HYPERKALAEMIA [None]
